FAERS Safety Report 5118001-7 (Version None)
Quarter: 2006Q3

REPORT INFORMATION
  Report Type: 
  Country: None (occurrence: None)
  Receive Date: 20060926
  Receipt Date: 20060914
  Transmission Date: 20061208
  Serious: Yes (Other)
  Sender: FDA-Public Use
  Company Number: 2006092127

PATIENT
  Age: 67 Year
  Sex: Female
  Weight: 53 kg

DRUGS (4)
  1. ZYVOX [Suspect]
     Indication: ABSCESS
     Dates: end: 20060611
  2. PASPERTIN (METOCLOPRAMIDE HYDROCHLORIDE) [Concomitant]
  3. NOVALGIN (METAMIZOLE SODIUM) [Concomitant]
  4. GEMZAR [Concomitant]

REACTIONS (9)
  - BILIARY TRACT DISORDER [None]
  - BLOOD BILIRUBIN INCREASED [None]
  - CHROMATURIA [None]
  - CONDITION AGGRAVATED [None]
  - DYSGEUSIA [None]
  - GAMMA-GLUTAMYLTRANSFERASE INCREASED [None]
  - NEUROPATHY PERIPHERAL [None]
  - THROMBOCYTHAEMIA [None]
  - TRANSAMINASES INCREASED [None]
